FAERS Safety Report 12645097 (Version 4)
Quarter: 2016Q4

REPORT INFORMATION
  Report Type: Spontaneous
  Country: US (occurrence: US)
  Receive Date: 20160811
  Receipt Date: 20161221
  Transmission Date: 20170207
  Serious: Yes (Hospitalization, Congenital Anomaly, Other)
  Sender: FDA-Public Use
  Company Number: PHHY2015US127135

PATIENT
  Sex: Female

DRUGS (3)
  1. ONDANSETRON HYDROCHLORIDE. [Suspect]
     Active Substance: ONDANSETRON HYDROCHLORIDE
     Indication: FOETAL EXPOSURE DURING PREGNANCY
     Route: 064
  2. ONDANSETRON PLIVA [Suspect]
     Active Substance: ONDANSETRON HYDROCHLORIDE
     Indication: FOETAL EXPOSURE DURING PREGNANCY
     Dosage: MOTHER^S DOSE: 4 MG, PRN
     Route: 064
  3. ZOFRAN [Suspect]
     Active Substance: ONDANSETRON HYDROCHLORIDE
     Indication: FOETAL EXPOSURE DURING PREGNANCY
     Route: 064

REACTIONS (12)
  - Eczema [Unknown]
  - Attention deficit/hyperactivity disorder [Unknown]
  - Pain [Unknown]
  - Ear infection [Unknown]
  - Foetal exposure during pregnancy [Unknown]
  - Developmental delay [Unknown]
  - Upper respiratory tract infection [Unknown]
  - Talipes [Unknown]
  - Epilepsy [Unknown]
  - Hypotonia neonatal [Unknown]
  - Emotional distress [Unknown]
  - Anhedonia [Unknown]
